FAERS Safety Report 17453872 (Version 6)
Quarter: 2020Q2

REPORT INFORMATION
  Report Type: Spontaneous
  Country: AU (occurrence: AU)
  Receive Date: 20200224
  Receipt Date: 20200427
  Transmission Date: 20200713
  Serious: Yes (Disabling, Other)
  Sender: FDA-Public Use
  Company Number: AU-BEH-2020113348

PATIENT
  Age: 89 Year
  Sex: Female
  Weight: 64.4 kg

DRUGS (12)
  1. HIZENTRA [Suspect]
     Active Substance: HUMAN IMMUNOGLOBULIN G
     Indication: PRIMARY IMMUNODEFICIENCY SYNDROME
     Dosage: 4 GRAM
     Route: 058
  2. HIZENTRA [Suspect]
     Active Substance: HUMAN IMMUNOGLOBULIN G
     Dosage: 6 GRAM (30ML), QW
     Route: 058
     Dates: start: 20200302
  3. HIZENTRA [Suspect]
     Active Substance: HUMAN IMMUNOGLOBULIN G
     Indication: IMMUNODEFICIENCY COMMON VARIABLE
     Dosage: 6 GRAM, QW
     Route: 058
     Dates: start: 20191203, end: 20200205
  4. OXYGEN. [Concomitant]
     Active Substance: OXYGEN
     Route: 065
  5. PREDNISONE. [Suspect]
     Active Substance: PREDNISONE
     Route: 065
  6. HIZENTRA [Suspect]
     Active Substance: HUMAN IMMUNOGLOBULIN G
     Dosage: 6 GRAM (30ML), QW
     Route: 058
     Dates: start: 20200303
  7. HIZENTRA [Suspect]
     Active Substance: HUMAN IMMUNOGLOBULIN G
     Dosage: UNK
     Route: 058
  8. HIZENTRA [Suspect]
     Active Substance: HUMAN IMMUNOGLOBULIN G
     Dosage: UNK
     Route: 058
  9. HIZENTRA [Suspect]
     Active Substance: HUMAN IMMUNOGLOBULIN G
     Dosage: UNK
     Route: 058
     Dates: start: 20200310
  10. HIZENTRA [Suspect]
     Active Substance: HUMAN IMMUNOGLOBULIN G
     Dosage: 6 GRAM, QW (FIRST DOSE)
     Route: 058
     Dates: start: 20200211, end: 20200211
  11. HIZENTRA [Suspect]
     Active Substance: HUMAN IMMUNOGLOBULIN G
     Dosage: 6 GRAM (30ML), QW
     Route: 058
     Dates: start: 20200225, end: 20200225
  12. HIZENTRA [Suspect]
     Active Substance: HUMAN IMMUNOGLOBULIN G
     Dosage: 6 GRAM, QW
     Route: 058

REACTIONS (26)
  - Arthralgia [Recovered/Resolved with Sequelae]
  - Pain in extremity [Recovering/Resolving]
  - Pyrexia [Unknown]
  - Constipation [Recovering/Resolving]
  - Injection site pain [Recovered/Resolved]
  - Infusion site swelling [Unknown]
  - Angina pectoris [Recovered/Resolved]
  - Pain in extremity [Recovered/Resolved with Sequelae]
  - Malaise [Unknown]
  - Chest discomfort [Unknown]
  - Back pain [Unknown]
  - Infusion site swelling [Unknown]
  - Musculoskeletal pain [Recovered/Resolved with Sequelae]
  - Headache [Unknown]
  - Lethargy [Unknown]
  - Lower respiratory tract infection [Not Recovered/Not Resolved]
  - Abdominal distension [Recovering/Resolving]
  - Headache [Recovered/Resolved]
  - Infusion site erythema [Unknown]
  - Productive cough [Not Recovered/Not Resolved]
  - Sputum discoloured [Not Recovered/Not Resolved]
  - Abdominal pain lower [Recovered/Resolved with Sequelae]
  - Gait disturbance [Unknown]
  - Blood glucose increased [Unknown]
  - Back pain [Recovered/Resolved with Sequelae]
  - Pain in extremity [Unknown]

NARRATIVE: CASE EVENT DATE: 20200212
